FAERS Safety Report 7331302-7 (Version None)
Quarter: 2011Q1

REPORT INFORMATION
  Report Type: 
  Country: None (occurrence: None)
  Receive Date: 20110302
  Receipt Date: 20110302
  Transmission Date: 20110831
  Serious: Yes (Disabling)
  Sender: FDA-Public Use
  Company Number: None

PATIENT
  Age: 40 Year
  Sex: Male
  Weight: 77.1115 kg

DRUGS (1)
  1. MCKESSON NON-STERILE UNKNOWN MCKESSON [Suspect]
     Indication: THERAPEUTIC SKIN CARE TOPICAL
     Dates: start: 20110218, end: 20110218

REACTIONS (4)
  - INJECTION SITE PAIN [None]
  - ERYTHEMA [None]
  - INFECTION [None]
  - LYMPHADENOPATHY [None]
